FAERS Safety Report 24293097 (Version 1)
Quarter: 2024Q3

REPORT INFORMATION
  Report Type: Spontaneous
  Country: US (occurrence: None)
  Receive Date: 20240906
  Receipt Date: 20240906
  Transmission Date: 20241017
  Serious: No
  Sender: DOMPE FARMACEUTICI
  Company Number: US-FARMAPROD-202311-3459

PATIENT
  Sex: Male
  Weight: 79.38 kg

DRUGS (18)
  1. OXERVATE [Suspect]
     Active Substance: CENEGERMIN-BKBJ
     Indication: Neurotrophic keratopathy
     Route: 047
     Dates: start: 20231116
  2. OXERVATE [Suspect]
     Active Substance: CENEGERMIN-BKBJ
  3. ZINC-15 [Concomitant]
  4. MINERALS\VITAMINS [Concomitant]
     Active Substance: MINERALS\VITAMINS
  5. COENZYME Q-10 [Concomitant]
     Dosage: 100 MG -5
  6. MAGNESIUM [Concomitant]
     Active Substance: MAGNESIUM
  7. XYLOCAINE MPF [Concomitant]
     Active Substance: LIDOCAINE HYDROCHLORIDE
  8. FISH OIL [Concomitant]
     Active Substance: FISH OIL
     Dosage: 100-160 MG
  9. VITAMIN D3 [Concomitant]
     Active Substance: CHOLECALCIFEROL
  10. UNSPECIFIED INGREDIENT [Concomitant]
     Active Substance: UNSPECIFIED INGREDIENT
     Dosage: 0.05 %-1 %
  11. AMLODIPINE BESYLATE [Concomitant]
     Active Substance: AMLODIPINE BESYLATE
  12. LIDOCAINE HYDROCHLORIDE [Concomitant]
     Active Substance: LIDOCAINE HYDROCHLORIDE
     Dosage: VIAL
  13. SIMVASTATIN [Concomitant]
     Active Substance: SIMVASTATIN
  14. IMIQUIMOD [Concomitant]
     Active Substance: IMIQUIMOD
     Dosage: PACK
  15. MOXIFLOXACIN [Concomitant]
     Active Substance: MOXIFLOXACIN
  16. OMEPRAZOLE [Concomitant]
     Active Substance: OMEPRAZOLE
  17. LEVOTHYROXINE SODIUM [Concomitant]
     Active Substance: LEVOTHYROXINE SODIUM
  18. APPLE CIDER VINEGAR [Concomitant]
     Active Substance: APPLE CIDER VINEGAR

REACTIONS (2)
  - Wrong technique in product usage process [Unknown]
  - Device use issue [Unknown]
